FAERS Safety Report 5355383-5 (Version None)
Quarter: 2007Q2

REPORT INFORMATION
  Report Type: 
  Country: None (occurrence: None)
  Receive Date: 20070530
  Receipt Date: 20070118
  Transmission Date: 20071010
  Serious: Yes (Other)
  Sender: FDA-Public Use
  Company Number: US200609003573

PATIENT
  Age: 32 Year
  Sex: Male
  Weight: 72.6 kg

DRUGS (4)
  1. ZYPREXA [Suspect]
     Indication: DEPRESSION
     Dosage: 20 MG, 2/D
     Dates: start: 20010101, end: 20050101
  2. DEPAKOTE [Concomitant]
  3. ZOLOFT [Concomitant]
  4. METOPROLOL TARTRATE [Concomitant]

REACTIONS (3)
  - HYPERTENSION [None]
  - PANCREATITIS [None]
  - PRESCRIBED OVERDOSE [None]
